FAERS Safety Report 4580567-3 (Version None)
Quarter: 2005Q1

REPORT INFORMATION
  Report Type: 
  Country: None (occurrence: None)
  Receive Date: 20050214
  Receipt Date: 20040414
  Transmission Date: 20050727
  Serious: No
  Sender: FDA-Public Use
  Company Number: US-GLAXOSMITHKLINE-A0507096A

PATIENT
  Age: 59 Year
  Sex: Female

DRUGS (3)
  1. LAMICTAL [Suspect]
     Indication: BIPOLAR DISORDER
     Route: 048
  2. KLONOPIN [Concomitant]
     Indication: BIPOLAR DISORDER
     Dosage: 2MG UNKNOWN
     Route: 065
  3. WELLBUTRIN SR [Concomitant]
     Indication: BIPOLAR DISORDER
     Dosage: 200MG PER DAY
     Route: 048

REACTIONS (3)
  - HYPOAESTHESIA ORAL [None]
  - RASH [None]
  - SWELLING FACE [None]
